FAERS Safety Report 6070405-4 (Version None)
Quarter: 2009Q1

REPORT INFORMATION
  Report Type: 
  Country: None (occurrence: None)
  Receive Date: 20090209
  Receipt Date: 20090129
  Transmission Date: 20090719
  Serious: Yes (Other)
  Sender: FDA-Public Use
  Company Number: US-JNJFOC-20090200398

PATIENT
  Age: 6 Decade
  Sex: Female

DRUGS (2)
  1. DORIBAX [Suspect]
     Indication: KLEBSIELLA INFECTION
     Dosage: ADMINISTERED OVER 4 HOURS
     Route: 041
  2. COLISTIN SULFATE [Suspect]
     Indication: KLEBSIELLA INFECTION
     Route: 042

REACTIONS (1)
  - RENAL FAILURE [None]
